FAERS Safety Report 5425648-7 (Version None)
Quarter: 2007Q3

REPORT INFORMATION
  Report Type: 
  Country: None (occurrence: None)
  Receive Date: 20070824
  Receipt Date: 20070813
  Transmission Date: 20080115
  Serious: Yes (Other)
  Sender: FDA-Public Use
  Company Number: US-PFIZER INC-2007068003

PATIENT
  Sex: Female
  Weight: 77.1 kg

DRUGS (4)
  1. LYRICA [Suspect]
     Indication: FIBROMYALGIA
     Dates: start: 20070501, end: 20070701
  2. LYRICA [Suspect]
     Indication: SURGERY
  3. LORTAB [Concomitant]
  4. BACLOFEN [Concomitant]

REACTIONS (2)
  - ACCIDENT [None]
  - BALANCE DISORDER [None]
